FAERS Safety Report 4999802-2 (Version None)
Quarter: 2006Q2

REPORT INFORMATION
  Report Type: 
  Country: None (occurrence: None)
  Receive Date: 20060511
  Receipt Date: 20060504
  Transmission Date: 20061013
  Serious: Yes (Hospitalization)
  Sender: FDA-Public Use
  Company Number: US-JNJFOC-20060501255

PATIENT
  Sex: Male

DRUGS (19)
  1. REMICADE [Suspect]
     Indication: RHEUMATOID ARTHRITIS
     Route: 042
  2. HYDROCODONE BITARTRATE + ACETAMINOPHEN [Concomitant]
  3. HYDROCODONE BITARTRATE + ACETAMINOPHEN [Concomitant]
  4. METHOTREXATE [Concomitant]
  5. LOPRESSOR [Concomitant]
  6. ANTI-ARRHYTHMIC [Concomitant]
  7. MULTI-VITAMIN [Concomitant]
  8. MULTI-VITAMIN [Concomitant]
  9. MULTI-VITAMIN [Concomitant]
  10. MULTI-VITAMIN [Concomitant]
  11. MULTI-VITAMIN [Concomitant]
  12. MULTI-VITAMIN [Concomitant]
  13. MULTI-VITAMIN [Concomitant]
  14. MULTI-VITAMIN [Concomitant]
  15. PREDNISONE TAB [Concomitant]
  16. SYNTHROID [Concomitant]
  17. MOBIC [Concomitant]
  18. PLAVIX [Concomitant]
  19. CALCIUM GLUCONATE [Concomitant]

REACTIONS (1)
  - CORONARY ARTERY DISEASE [None]
